FAERS Safety Report 6292260-X (Version None)
Quarter: 2009Q3

REPORT INFORMATION
  Report Type: 
  Country: None (occurrence: None)
  Receive Date: 20090731
  Receipt Date: 20090727
  Transmission Date: 20100115
  Serious: Yes (Other)
  Sender: FDA-Public Use
  Company Number: CA-BAYER-200928137NA

PATIENT
  Age: 49 Year
  Sex: Female

DRUGS (1)
  1. MIRENA [Suspect]
     Indication: DRUG USE FOR UNKNOWN INDICATION
     Dosage: CONTINUOUS
     Route: 015
     Dates: start: 20090721

REACTIONS (7)
  - CRYING [None]
  - DEPRESSED MOOD [None]
  - FEELING ABNORMAL [None]
  - HYPERSOMNIA [None]
  - LETHARGY [None]
  - RASH [None]
  - UNEVALUABLE EVENT [None]
